FAERS Safety Report 9112082 (Version 1)
Quarter: 2013Q1

REPORT INFORMATION
  Report Type: Spontaneous
  Country: US (occurrence: US)
  Receive Date: 20130219
  Receipt Date: 20130219
  Transmission Date: 20140127
  Serious: Yes (Other)
  Sender: FDA-Public Use
  Company Number: US-BRISTOL-MYERS SQUIBB COMPANY-17035940

PATIENT
  Sex: Female

DRUGS (1)
  1. ORENCIA FOR INJ [Suspect]
     Dosage: IV FOR 5 YRS,DECEMBER 2011 SWITCHED TO ORENCIA SUBCUTANEOUS
     Route: 058

REACTIONS (1)
  - Infection [Unknown]
